FAERS Safety Report 7827346-9 (Version None)
Quarter: 2011Q4

REPORT INFORMATION
  Report Type: 
  Country: None (occurrence: None)
  Receive Date: 20111020
  Receipt Date: 20111013
  Transmission Date: 20120403
  Serious: Yes (Other)
  Sender: FDA-Public Use
  Company Number: IT-PFIZER INC-2011237041

PATIENT
  Age: 40 Year
  Sex: Female

DRUGS (3)
  1. CISPLATIN [Suspect]
     Indication: THYMOMA
     Dosage: 55 MG, CYCLIC
     Route: 042
     Dates: start: 20110624
  2. CYCLOPHOSPHAMIDE [Suspect]
     Indication: THYMOMA
     Dosage: 920 MG, CYCLIC
     Route: 042
     Dates: start: 20110624
  3. EPIRUBICIN HYDROCHLORIDE [Suspect]
     Indication: THYMOMA
     Dosage: 138 MG, CYCLIC
     Route: 042
     Dates: start: 20110624

REACTIONS (4)
  - NAUSEA [None]
  - HYPERTRANSAMINASAEMIA [None]
  - ALOPECIA [None]
  - NEUTROPENIA [None]
